FAERS Safety Report 25720039 (Version 2)
Quarter: 2025Q3

REPORT INFORMATION
  Report Type: Report from Study
  Country: US (occurrence: US)
  Receive Date: 20250825
  Receipt Date: 20250918
  Transmission Date: 20251020
  Serious: No
  Sender: SUNOVION
  Company Number: US-SUMITOMO PHARMA SWITZERLAND GMBH-2025SPA007383

PATIENT
  Age: 75 Year
  Sex: Male

DRUGS (29)
  1. ORGOVYX [Suspect]
     Active Substance: RELUGOLIX
     Indication: Prostate cancer
     Dosage: 240 MG, SINGLE
     Route: 048
     Dates: start: 20250529, end: 20250529
  2. ORGOVYX [Suspect]
     Active Substance: RELUGOLIX
     Dosage: 120 MG, QD
     Route: 048
     Dates: start: 20250530
  3. ALENDRONATE SODIUM [Concomitant]
     Active Substance: ALENDRONATE SODIUM
  4. AMLODIPINE BESYLATE [Concomitant]
     Active Substance: AMLODIPINE BESYLATE
  5. BRIMONIDINE TARTRATE [Concomitant]
     Active Substance: BRIMONIDINE TARTRATE
  6. BUPROPION HYDROCHLORIDE [Concomitant]
     Active Substance: BUPROPION HYDROCHLORIDE
  7. CANDESARTAN CILEXETIL [Concomitant]
     Active Substance: CANDESARTAN CILEXETIL
  8. CLOBETASOL PROPIONATE [Concomitant]
     Active Substance: CLOBETASOL PROPIONATE
  9. CLONAZEPAM [Concomitant]
     Active Substance: CLONAZEPAM
  10. OMEPRAZOLE [Concomitant]
     Active Substance: OMEPRAZOLE
  11. DORZOLAMIDE HYDROCHLORIDE\TIMOLOL MALEATE [Concomitant]
     Active Substance: DORZOLAMIDE HYDROCHLORIDE\TIMOLOL MALEATE
     Route: 047
  12. LUMIGAN [Concomitant]
     Active Substance: BIMATOPROST
  13. MELOXICAM [Concomitant]
     Active Substance: MELOXICAM
  14. OFLOXACIN [Concomitant]
     Active Substance: OFLOXACIN
  15. ONDANSETRON [Concomitant]
     Active Substance: ONDANSETRON
  16. PHENAZOPYRIDINE HCL [Concomitant]
     Active Substance: PHENAZOPYRIDINE HYDROCHLORIDE
  17. PREDNISOLONE ACETATE [Concomitant]
     Active Substance: PREDNISOLONE ACETATE
  18. NEPAFENAC [Concomitant]
     Active Substance: NEPAFENAC
     Route: 047
  19. VITAMIN D3 [Concomitant]
     Active Substance: CHOLECALCIFEROL
  20. RHOPRESSA [Concomitant]
     Active Substance: NETARSUDIL MESYLATE
  21. TAMSULOSIN HYDROCHLORIDE [Concomitant]
     Active Substance: TAMSULOSIN HYDROCHLORIDE
  22. TIZANIDINE HYDROCHLORIDE [Concomitant]
     Active Substance: TIZANIDINE HYDROCHLORIDE
  23. TRAVOPROST [Concomitant]
     Active Substance: TRAVOPROST
  24. TRAZODONE HCL [Concomitant]
     Active Substance: TRAZODONE HYDROCHLORIDE
  25. VYZULTA [Concomitant]
     Active Substance: LATANOPROSTENE BUNOD
  26. PILOCARPINE [Concomitant]
     Active Substance: PILOCARPINE
  27. PAXLOVID [Concomitant]
     Active Substance: NIRMATRELVIR\RITONAVIR
  28. ROSUVASTATIN [Concomitant]
     Active Substance: ROSUVASTATIN
  29. ACETAZOLAMIDE [Concomitant]
     Active Substance: ACETAZOLAMIDE

REACTIONS (3)
  - Eye disorder [Recovered/Resolved]
  - Libido decreased [Unknown]
  - Incorrect dose administered [Recovered/Resolved]
